FAERS Safety Report 4936289-X (Version None)
Quarter: 2006Q1

REPORT INFORMATION
  Report Type: 
  Country: None (occurrence: None)
  Receive Date: 20060307
  Receipt Date: 20060117
  Transmission Date: 20060701
  Serious: Yes (Other)
  Sender: FDA-Public Use
  Company Number: DE-AVENTIS-200610136DE

PATIENT
  Age: 42 Year
  Sex: Female
  Weight: 65 kg

DRUGS (7)
  1. ENOXAPARIN SODIUM [Suspect]
     Indication: INFARCTION
     Route: 058
     Dates: start: 20040813, end: 20040914
  2. YASMIN [Concomitant]
     Indication: CONTRACEPTION
     Dosage: DOSE UNIT: UNITS
     Route: 048
     Dates: start: 20010701, end: 20040812
  3. MAXALT [Concomitant]
     Indication: MIGRAINE
     Dosage: DOSE UNIT: UNITS
     Route: 048
     Dates: start: 20040201, end: 20040917
  4. ACETAMINOPHEN [Concomitant]
     Indication: MIGRAINE
     Dosage: DOSE UNIT: UNITS
     Route: 048
     Dates: start: 19800101, end: 20041006
  5. ASPIRIN [Concomitant]
     Indication: MIGRAINE
     Dosage: DOSE UNIT: UNITS
     Route: 048
     Dates: start: 19800101, end: 20040301
  6. ASPIRIN [Concomitant]
     Route: 048
     Dates: start: 20040910
  7. PLAVIX [Concomitant]
     Dosage: DOSE: NOT REPORTED
     Route: 048
     Dates: start: 20040909

REACTIONS (6)
  - ALANINE AMINOTRANSFERASE INCREASED [None]
  - ASPARTATE AMINOTRANSFERASE INCREASED [None]
  - BLOOD ALKALINE PHOSPHATASE INCREASED [None]
  - GAMMA-GLUTAMYLTRANSFERASE [None]
  - HEPATIC ENZYME INCREASED [None]
  - HEPATITIS ACUTE [None]
